FAERS Safety Report 9024217 (Version 1)
Quarter: 2013Q1

REPORT INFORMATION
  Report Type: Report from Study
  Country: CA (occurrence: CA)
  Receive Date: 20130122
  Receipt Date: 20130122
  Transmission Date: 20140127
  Serious: Yes (Hospitalization)
  Sender: FDA-Public Use
  Company Number: CA-009507513-1301CAN005439

PATIENT
  Age: 57 Year
  Sex: Male
  Weight: 100.1 kg

DRUGS (5)
  1. TEMOZOLOMIDE [Suspect]
     Indication: GLIOBLASTOMA
     Dosage: 150 MG/M2, 1 IN 1D
     Route: 048
     Dates: start: 20101101
  2. RANITIDINE [Concomitant]
     Dosage: 300 MG, UNK
     Route: 048
     Dates: start: 201009
  3. METFORMIN HYDROCHLORIDE [Concomitant]
     Dosage: 1000 MG, UNK
     Dates: start: 20101021
  4. TEGRETOL [Concomitant]
     Dosage: 600 MG, QD
     Dates: start: 201009
  5. KEPPRA [Concomitant]
     Dosage: 2000MG DAILY
     Dates: start: 201009

REACTIONS (1)
  - Brain oedema [Unknown]
